FAERS Safety Report 8941182 (Version 5)
Quarter: 2013Q2

REPORT INFORMATION
  Report Type: Report from Study
  Country: CZ (occurrence: CZ)
  Receive Date: 20121203
  Receipt Date: 20130612
  Transmission Date: 20140414
  Serious: Yes (Hospitalization)
  Sender: FDA-Public Use
  Company Number: CZ-BRISTOL-MYERS SQUIBB COMPANY-17162231

PATIENT
  Age: 59 Year
  Sex: Male

DRUGS (3)
  1. CETUXIMAB [Suspect]
     Indication: OESOPHAGEAL CARCINOMA
     Dosage: 13APR12:760MG?19APR-16MAY12:467MG?24MAY12-ONG:470MG; RECENT DOSE: ON 20-JUN-2012.
     Route: 042
     Dates: start: 20120413
  2. CISPLATIN FOR INJ [Suspect]
     Indication: OESOPHAGEAL CARCINOMA
     Dosage: 24MAY12:47MG; RECENT DOSE: ON 20-JUN-2012.
     Route: 042
     Dates: start: 20120413
  3. TAXOTERE [Suspect]
     Indication: OESOPHAGEAL CARCINOMA
     Dosage: 24MAY12:37MG; RECENT DOSE: ON 20-JUN-2012.
     Route: 042
     Dates: start: 20120413

REACTIONS (1)
  - Oesophageal fistula [Recovered/Resolved with Sequelae]
